FAERS Safety Report 13187896 (Version 2)
Quarter: 2017Q1

REPORT INFORMATION
  Report Type: Report from Study
  Country: HU (occurrence: HU)
  Receive Date: 20170206
  Receipt Date: 20170214
  Transmission Date: 20170428
  Serious: Yes (Death, Other)
  Sender: FDA-Public Use
  Company Number: HU-ROCHE-1885574

PATIENT

DRUGS (6)
  1. 5-FLUOROURACIL [Suspect]
     Active Substance: FLUOROURACIL
     Indication: COLORECTAL CANCER METASTATIC
     Route: 065
  2. IRINOTECAN [Suspect]
     Active Substance: IRINOTECAN
     Indication: COLORECTAL CANCER METASTATIC
     Route: 065
  3. OXALIPLATIN. [Suspect]
     Active Substance: OXALIPLATIN
     Indication: COLORECTAL CANCER METASTATIC
     Route: 065
  4. PEGFILGRASTIM [Suspect]
     Active Substance: PEGFILGRASTIM
     Indication: PROPHYLAXIS
     Dosage: ONCE PER 14-DAY CYCLE
     Route: 058
  5. LEUCOVORIN. [Suspect]
     Active Substance: LEUCOVORIN
     Indication: COLORECTAL CANCER METASTATIC
     Route: 065
  6. BEVACIZUMAB [Suspect]
     Active Substance: BEVACIZUMAB
     Indication: COLORECTAL CANCER METASTATIC
     Dosage: ON DAY 1 OF EACH 14-DAY CYCLE
     Route: 042

REACTIONS (22)
  - Subileus [Fatal]
  - Vomiting [Unknown]
  - Febrile neutropenia [Unknown]
  - Hepatorenal failure [Fatal]
  - Sudden death [Fatal]
  - Dehydration [Fatal]
  - Diarrhoea [Unknown]
  - Hypertension [Unknown]
  - Neutropenia [Unknown]
  - Peritonitis [Fatal]
  - Tumour necrosis [Fatal]
  - Gastrointestinal haemorrhage [Fatal]
  - Abdominal pain [Unknown]
  - Anaemia [Unknown]
  - Cardio-respiratory arrest [Fatal]
  - Cerebrovascular accident [Fatal]
  - General physical health deterioration [Fatal]
  - Subclavian vein thrombosis [Fatal]
  - Intestinal perforation [Fatal]
  - Cardiac arrest [Fatal]
  - Tumour lysis syndrome [Fatal]
  - Hypokalaemia [Unknown]
